FAERS Safety Report 4754584-4 (Version None)
Quarter: 2005Q3

REPORT INFORMATION
  Report Type: 
  Country: None (occurrence: None)
  Receive Date: 20050829
  Receipt Date: 20050815
  Transmission Date: 20060218
  Serious: Yes (Other)
  Sender: FDA-Public Use
  Company Number: JP-MERCK-0508USA03293M

PATIENT
  Age: 25 Year
  Sex: Female

DRUGS (5)
  1. INDOCIN [Suspect]
     Indication: THREATENED LABOUR
     Route: 054
     Dates: start: 20050809, end: 20050810
  2. INDOCIN [Suspect]
     Route: 054
     Dates: start: 20050811, end: 20050811
  3. UTEMERIN [Concomitant]
     Indication: THREATENED LABOUR
     Route: 065
     Dates: start: 20050712
  4. MAGNESIUM SULFATE [Concomitant]
     Route: 042
     Dates: start: 20050809
  5. GASTER [Concomitant]
     Route: 065
     Dates: start: 20050812

REACTIONS (3)
  - CAESAREAN SECTION [None]
  - DRUG EXPOSURE DURING PREGNANCY [None]
  - PREMATURE LABOUR [None]
